FAERS Safety Report 5070283-6 (Version None)
Quarter: 2006Q3

REPORT INFORMATION
  Report Type: 
  Country: None (occurrence: None)
  Receive Date: 20060731
  Receipt Date: 20060721
  Transmission Date: 20061208
  Serious: Yes (Other)
  Sender: FDA-Public Use
  Company Number: 227774

PATIENT
  Sex: Female

DRUGS (1)
  1. RAPTIVA [Suspect]
     Indication: PSORIASIS
     Dosage: 42 MG
     Dates: start: 20060712

REACTIONS (4)
  - FLUID RETENTION [None]
  - GENERALISED OEDEMA [None]
  - MIGRAINE [None]
  - WEIGHT INCREASED [None]
